FAERS Safety Report 8918085 (Version 3)
Quarter: 2013Q1

REPORT INFORMATION
  Report Type: Spontaneous
  Country: US (occurrence: US)
  Receive Date: 20121120
  Receipt Date: 20130318
  Transmission Date: 20140127
  Serious: Yes (Hospitalization, Disabling, Other)
  Sender: FDA-Public Use
  Company Number: US-009507513-1103USA00960

PATIENT
  Sex: Female

DRUGS (10)
  1. FOSAMAX [Suspect]
     Indication: OSTEOPOROSIS
     Dosage: 35 MG, UNK
     Route: 048
     Dates: start: 199812, end: 200209
  2. FOSAMAX [Suspect]
     Dosage: 70 MG, UNK
     Route: 048
     Dates: start: 200210, end: 200706
  3. FOSAMAX [Suspect]
     Dosage: 70 MG, UNK
     Route: 048
     Dates: start: 200808, end: 200809
  4. FOSAMAX [Suspect]
     Dosage: 10 MG, UNK
     Route: 048
     Dates: start: 19981229
  5. FOSAMAX [Suspect]
     Indication: OSTEOPOROSIS
     Dosage: 70 MG, UNK
     Route: 048
     Dates: start: 200810, end: 201002
  6. FOSAMAX PLUS D [Suspect]
     Indication: OSTEOPOROSIS
     Dosage: 70MG/ 2800 IU
     Route: 048
     Dates: start: 200707, end: 200807
  7. CALCIUM (UNSPECIFIED) [Concomitant]
     Indication: OSTEOPOROSIS
     Dosage: 1200 MG, QD
     Dates: start: 1998
  8. VITAMIN D (UNSPECIFIED) [Concomitant]
     Indication: OSTEOPOROSIS
  9. CHOLECALCIFEROL [Concomitant]
     Dosage: 2000 IU, QD
     Dates: start: 1998
  10. CALTRATE PLUS (BORON (UNSPECIFIED) (+) CALCIUM CARBONATE (+) CHOLECALC [Concomitant]
     Indication: OSTEOPOROSIS
     Dosage: UNK
     Dates: start: 19981229

REACTIONS (23)
  - Femur fracture [Not Recovered/Not Resolved]
  - Intramedullary rod insertion [Unknown]
  - Medical device removal [Unknown]
  - Medical device implantation [Unknown]
  - Arthroscopy [Unknown]
  - Femur fracture [Unknown]
  - Impaired healing [Unknown]
  - Device failure [Unknown]
  - Tooth crowding [Unknown]
  - Wisdom teeth removal [Unknown]
  - Endodontic procedure [Unknown]
  - Dental implantation [Unknown]
  - Hypercholesterolaemia [Unknown]
  - Vitamin D deficiency [Unknown]
  - Spinal osteoarthritis [Unknown]
  - Osteoarthritis [Unknown]
  - Bone disorder [Unknown]
  - Wound drainage [Recovered/Resolved]
  - Incisional drainage [Unknown]
  - Impaired healing [Unknown]
  - Osteopenia [Unknown]
  - Internal fixation of fracture [Unknown]
  - Femur fracture [Unknown]
